FAERS Safety Report 7952589-3 (Version None)
Quarter: 2011Q4

REPORT INFORMATION
  Report Type: 
  Country: None (occurrence: None)
  Receive Date: 20111201
  Receipt Date: 20111125
  Transmission Date: 20120403
  Serious: Yes (Disabling, Other)
  Sender: FDA-Public Use
  Company Number: ES-PFIZER INC-2011263533

PATIENT
  Age: 32 Year
  Sex: Male

DRUGS (1)
  1. VARENICLINE TARTRATE [Suspect]
     Indication: SMOKING CESSATION THERAPY
     Dosage: UNK

REACTIONS (3)
  - GASTROINTESTINAL DISORDER [None]
  - ADJUSTMENT DISORDER [None]
  - ANGIOPATHY [None]
